FAERS Safety Report 5365942-1 (Version None)
Quarter: 2007Q2

REPORT INFORMATION
  Report Type: 
  Country: None (occurrence: None)
  Receive Date: 20070611
  Receipt Date: 20070119
  Transmission Date: 20071010
  Serious: Yes (Other)
  Sender: FDA-Public Use
  Company Number: USA-2007-0026269

PATIENT
  Age: 42 Year
  Sex: Female

DRUGS (2)
  1. OXYCONTIN [Suspect]
     Indication: OSTEOARTHRITIS
  2. ZOLOFT [Concomitant]

REACTIONS (1)
  - DRUG DEPENDENCE [None]
